FAERS Safety Report 7927768-1 (Version None)
Quarter: 2011Q4

REPORT INFORMATION
  Report Type: 
  Country: None (occurrence: None)
  Receive Date: 20111118
  Receipt Date: 20111114
  Transmission Date: 20120403
  Serious: Yes (Death)
  Sender: FDA-Public Use
  Company Number: FR-SANOFI-AVENTIS-2011SA074981

PATIENT
  Sex: Male

DRUGS (2)
  1. AMIODARONE HCL [Concomitant]
     Route: 065
  2. MULTAQ [Suspect]
     Route: 048

REACTIONS (1)
  - DEATH [None]
